FAERS Safety Report 12998385 (Version 1)
Quarter: 2016Q4

REPORT INFORMATION
  Report Type: Spontaneous
  Country: US (occurrence: US)
  Receive Date: 20161202
  Receipt Date: 20161202
  Transmission Date: 20170207
  Serious: No
  Sender: FDA-Public Use
  Company Number: None

PATIENT
  Age: 73 Year
  Sex: Male

DRUGS (4)
  1. SILDENAFIL TAB 20MG [Suspect]
     Active Substance: SILDENAFIL
     Indication: ATRIAL FIBRILLATION
  2. SILDENAFIL TAB 20MG [Suspect]
     Active Substance: SILDENAFIL
     Indication: IDIOPATHIC INTERSTITIAL PNEUMONIA
  3. SILDENAFIL TAB 20MG [Suspect]
     Active Substance: SILDENAFIL
     Indication: INTERSTITIAL LUNG DISEASE
  4. SILDENAFIL TAB 20MG [Suspect]
     Active Substance: SILDENAFIL
     Indication: SYSTEMIC LUPUS ERYTHEMATOSUS

REACTIONS (2)
  - Asthenia [None]
  - Drug ineffective [None]

NARRATIVE: CASE EVENT DATE: 20161202
